FAERS Safety Report 7433570-X (Version None)
Quarter: 2011Q2

REPORT INFORMATION
  Report Type: 
  Country: None (occurrence: None)
  Receive Date: 20110422
  Receipt Date: 20110411
  Transmission Date: 20111010
  Serious: Yes (Other)
  Sender: FDA-Public Use
  Company Number: US-ELI_LILLY_AND_COMPANY-US201008001168

PATIENT
  Sex: Female

DRUGS (23)
  1. KEPPRA [Concomitant]
     Dosage: 750 MG, BID
     Route: 065
  2. LUMIGAN [Concomitant]
     Dosage: 0.03 %, UNK
     Route: 065
  3. IPRATROPIUM BROMIDE [Concomitant]
     Dosage: 0.5 MG, PRN
     Route: 065
  4. FORTEO [Suspect]
     Dosage: 20 UG, DAILY (1/D)
     Route: 065
  5. TIMOLOL [Concomitant]
     Dosage: UNK UNK, BID
     Route: 065
  6. COLCHICINE [Concomitant]
     Dosage: 0.6 MG, BID
  7. PROTONIX [Concomitant]
     Dosage: 40 MG, BID
     Route: 065
  8. FORTEO [Suspect]
     Dosage: 20 UG, DAILY (1/D)
     Route: 065
  9. MS CONTIN [Concomitant]
     Dosage: 30 MG, TID
     Route: 065
  10. SYNTHROID [Concomitant]
     Dosage: 1 MG, EACH MORNING
     Route: 065
  11. FORTEO [Suspect]
     Dosage: 20 UG, QD
     Route: 065
  12. XANAX [Concomitant]
     Dosage: 1 MG, TID
     Route: 065
  13. PROMETRIUM [Concomitant]
     Dosage: 100 MG, EACH MORNING
     Route: 065
  14. LAMICTAL [Concomitant]
     Dosage: 150 MG, QD
     Route: 065
  15. ALPHAGAN [Concomitant]
     Dosage: UNK UNK, BID
     Route: 065
  16. ALBUTEROL SULFATE [Concomitant]
     Dosage: 3.0 MG, PRN
     Route: 065
  17. FORTEO [Suspect]
     Indication: OSTEOPOROSIS
     Dosage: 20 UG, DAILY (1/D)
     Route: 065
     Dates: start: 20100802
  18. MEGESTROL ACETATE [Concomitant]
     Dosage: 1 DF, EACH MORNING
     Route: 065
  19. FORTEO [Suspect]
     Dosage: 20 UG, DAILY (1/D)
     Route: 065
  20. AMBIEN [Concomitant]
     Dosage: 10 MG, QD
     Route: 065
  21. VITAMIN B-12 [Concomitant]
     Dosage: UNK, MONTHLY (1/M)
     Route: 065
  22. LORA TAB [Concomitant]
     Indication: PAIN
     Dosage: 7.5 MG, EVERY 3 HRS
     Route: 065
  23. MIRALAX [Concomitant]
     Indication: ABDOMINAL DISCOMFORT
     Route: 065

REACTIONS (27)
  - DIARRHOEA [None]
  - MUSCULOSKELETAL DISORDER [None]
  - DRY MOUTH [None]
  - MYALGIA [None]
  - ABDOMINAL PAIN UPPER [None]
  - VISION BLURRED [None]
  - INCORRECT DOSE ADMINISTERED [None]
  - MUSCULOSKELETAL STIFFNESS [None]
  - LIMB DISCOMFORT [None]
  - ABDOMINAL PAIN [None]
  - ARTHRALGIA [None]
  - PAIN [None]
  - DRY EYE [None]
  - DYSPHONIA [None]
  - STRESS [None]
  - FATIGUE [None]
  - FALL [None]
  - MUSCLE SPASMS [None]
  - SOMNOLENCE [None]
  - HEADACHE [None]
  - DEPRESSION [None]
  - LOSS OF CONSCIOUSNESS [None]
  - HAEMATOCHEZIA [None]
  - PAIN IN EXTREMITY [None]
  - INJECTION SITE PAIN [None]
  - FEELING ABNORMAL [None]
  - SYSTEMIC LUPUS ERYTHEMATOSUS [None]
